FAERS Safety Report 20926464 (Version 2)
Quarter: 2023Q1

REPORT INFORMATION
  Report Type: Other
  Country: US (occurrence: None)
  Receive Date: 20220607
  Receipt Date: 20230328
  Transmission Date: 20230417
  Serious: No
  Sender: FDA-Public Use
  Company Number: US-ROCHE-3107791

PATIENT
  Age: 32 Year
  Sex: Female
  Weight: 66.284 kg

DRUGS (4)
  1. OCREVUS [Suspect]
     Active Substance: OCRELIZUMAB
     Indication: Relapsing-remitting multiple sclerosis
     Dosage: NO, DATE OF TREATMENT: 18/FEB/2019, /JAN/2019, 08/SEP/2022, 10/MAR/2023
     Route: 042
     Dates: start: 20180802, end: 20210122
  2. SHAROBEL [Concomitant]
     Active Substance: NORETHINDRONE
     Route: 065
  3. IBUPROFEN [Concomitant]
     Active Substance: IBUPROFEN
  4. VALTREX [Concomitant]
     Active Substance: VALACYCLOVIR HYDROCHLORIDE

REACTIONS (4)
  - COVID-19 [Unknown]
  - Gestational diabetes [Unknown]
  - Weight decreased [Unknown]
  - Maternal exposure before pregnancy [Unknown]

NARRATIVE: CASE EVENT DATE: 20220522
